FAERS Safety Report 9565156 (Version 3)
Quarter: 2013Q4

REPORT INFORMATION
  Report Type: Spontaneous
  Country: DE (occurrence: DE)
  Receive Date: 20130930
  Receipt Date: 20131008
  Transmission Date: 20140711
  Serious: Yes (Death, Other)
  Sender: FDA-Public Use
  Company Number: DE-OTSUKA-EU-2013-10207

PATIENT
  Age: 81 Year
  Sex: Female

DRUGS (5)
  1. SAMSCA [Suspect]
     Indication: INAPPROPRIATE ANTIDIURETIC HORMONE SECRETION
     Dosage: 15 MG MILLIGRAM(S), QD
     Dates: start: 20130809, end: 20130811
  2. ISOTONIC SODIUM CHLORIDE SOLUTION [Concomitant]
     Dosage: UNK UNK, UNKNOWN
     Dates: start: 20130808, end: 20130808
  3. METOPROLOL [Concomitant]
     Indication: HYPERTENSION
     Dosage: 75 MG MILLIGRAM(S), BID
     Route: 048
  4. SIMVASTATIN [Concomitant]
     Indication: HYPERCHOLESTEROLAEMIA
     Dosage: 20 MG MILLIGRAM(S), QD
     Route: 048
  5. BENALAPRIL [Concomitant]
     Indication: HYPERTENSION
     Dosage: 10 MG MILLIGRAM(S), BID
     Route: 048

REACTIONS (2)
  - Death [Fatal]
  - Rapid correction of hyponatraemia [Unknown]
